FAERS Safety Report 8274255-X (Version None)
Quarter: 2012Q2

REPORT INFORMATION
  Report Type: 
  Country: None (occurrence: None)
  Receive Date: 20120411
  Receipt Date: 20120411
  Transmission Date: 20120825
  Serious: Yes (Disabling)
  Sender: FDA-Public Use
  Company Number: None

PATIENT
  Age: 48 Year
  Sex: Female
  Weight: 50.802 kg

DRUGS (1)
  1. FEMARA [Suspect]
     Indication: ANTIOESTROGEN THERAPY
     Dosage: 2.5 MG
     Route: 048
     Dates: start: 20100522, end: 20120220

REACTIONS (2)
  - RIB FRACTURE [None]
  - BONE DENSITY DECREASED [None]
